FAERS Safety Report 7524960-5 (Version None)
Quarter: 2011Q2

REPORT INFORMATION
  Report Type: 
  Country: None (occurrence: None)
  Receive Date: 20110602
  Receipt Date: 20110602
  Transmission Date: 20111010
  Serious: Yes (Hospitalization)
  Sender: FDA-Public Use
  Company Number: None

PATIENT
  Age: 45 Year
  Sex: Male
  Weight: 49.8957 kg

DRUGS (2)
  1. CLOPIDOGREL [Suspect]
     Indication: POSTOPERATIVE CARE
     Dosage: 75 MG EVERY DAY PO
     Route: 048
     Dates: start: 20100716, end: 20110527
  2. WARFARIN SODIUM [Suspect]
     Indication: CEREBROVASCULAR ACCIDENT
     Dosage: 5 MG EVERY DAY PO
     Route: 048
     Dates: start: 20100715, end: 20110527

REACTIONS (1)
  - GASTROINTESTINAL HAEMORRHAGE [None]
